FAERS Safety Report 9225672 (Version 1)
Quarter: 2013Q2

REPORT INFORMATION
  Report Type: Spontaneous
  Country: US (occurrence: US)
  Receive Date: 20130411
  Receipt Date: 20130411
  Transmission Date: 20140414
  Serious: Yes (Hospitalization, Other)
  Sender: FDA-Public Use
  Company Number: US-ELI_LILLY_AND_COMPANY-US201304001309

PATIENT
  Age: 46 Year
  Sex: Male

DRUGS (2)
  1. AXIRON [Suspect]
     Indication: BLOOD TESTOSTERONE DECREASED
     Dosage: 60 MG, QD
     Dates: start: 201303, end: 201303
  2. LISINOPRIL [Concomitant]
     Dosage: UNK

REACTIONS (1)
  - Myocardial infarction [Recovering/Resolving]
